FAERS Safety Report 9992756 (Version 2)
Quarter: 2014Q1

REPORT INFORMATION
  Report Type: Report from Study
  Country: US (occurrence: US)
  Receive Date: 20140310
  Receipt Date: 20140318
  Transmission Date: 20141002
  Serious: Yes (Hospitalization)
  Sender: FDA-Public Use
  Company Number: US-BRISTOL-MYERS SQUIBB COMPANY-20352795

PATIENT
  Age: 56 Year
  Sex: Male
  Weight: 98.4 kg

DRUGS (1)
  1. IPILIMUMAB [Suspect]
     Indication: HAEMATOLOGICAL MALIGNANCY
     Dosage: LAST DOSE:12FEB14?DOSAGE:10 MG/KG OVER 90MIN ON DAY 1
     Route: 042
     Dates: start: 20140122

REACTIONS (8)
  - Alanine aminotransferase increased [Not Recovered/Not Resolved]
  - Blood alkaline phosphatase increased [Not Recovered/Not Resolved]
  - Aspartate aminotransferase increased [Not Recovered/Not Resolved]
  - Blood bilirubin increased [Not Recovered/Not Resolved]
  - Pyrexia [Not Recovered/Not Resolved]
  - Abdominal pain [Not Recovered/Not Resolved]
  - Hypotension [Not Recovered/Not Resolved]
  - Presyncope [Not Recovered/Not Resolved]
